FAERS Safety Report 6766987-7 (Version None)
Quarter: 2010Q2

REPORT INFORMATION
  Report Type: 
  Country: None (occurrence: None)
  Receive Date: 20100611
  Receipt Date: 20100601
  Transmission Date: 20101027
  Serious: Yes (Hospitalization)
  Sender: FDA-Public Use
  Company Number: JP-AMGEN-US407368

PATIENT
  Sex: Female
  Weight: 66 kg

DRUGS (10)
  1. ENBREL [Suspect]
     Indication: RHEUMATOID ARTHRITIS
     Route: 058
     Dates: start: 20090317, end: 20090616
  2. METHOTREXATE [Suspect]
     Indication: RHEUMATOID ARTHRITIS
     Route: 048
     Dates: start: 20070501, end: 20070701
  3. METHOTREXATE [Suspect]
     Route: 048
     Dates: start: 20070701
  4. PREDNISOLONE [Suspect]
     Indication: RHEUMATOID ARTHRITIS
     Route: 048
     Dates: start: 20070501
  5. REMICADE [Suspect]
     Indication: RHEUMATOID ARTHRITIS
     Route: 042
     Dates: start: 20070901, end: 20080201
  6. REMICADE [Suspect]
     Dosage: UNSPECIFIED
     Route: 042
     Dates: start: 20080701, end: 20090317
  7. ACTONEL [Concomitant]
     Route: 048
     Dates: start: 20070501
  8. MOBIC [Concomitant]
     Route: 048
     Dates: start: 20070501
  9. TAKEPRON [Concomitant]
     Route: 048
     Dates: start: 20070501
  10. FOLIC ACID [Concomitant]
     Route: 048
     Dates: start: 20070301

REACTIONS (1)
  - ACTINOMYCOSIS [None]
